FAERS Safety Report 22264970 (Version 1)
Quarter: 2023Q2

REPORT INFORMATION
  Report Type: Spontaneous
  Country: US (occurrence: None)
  Receive Date: 20230425
  Receipt Date: 20230425
  Transmission Date: 20230722
  Serious: No
  Sender: FDA-Public Use
  Company Number: None

PATIENT

DRUGS (1)
  1. PERCY MEDICINE [Suspect]
     Active Substance: BISMUTH SUBSALICYLATE
     Dates: start: 202304, end: 20230417

REACTIONS (2)
  - Product outer packaging issue [None]
  - Product administered to patient of inappropriate age [None]
